FAERS Safety Report 6866628-4 (Version None)
Quarter: 2010Q3

REPORT INFORMATION
  Report Type: 
  Country: None (occurrence: None)
  Receive Date: 20100722
  Receipt Date: 20100713
  Transmission Date: 20110219
  Serious: Yes (Death, Hospitalization, Other)
  Sender: FDA-Public Use
  Company Number: NL-CELGENEUS-114-50794-10070012

PATIENT
  Sex: Female

DRUGS (2)
  1. VIDAZA [Suspect]
     Indication: ACUTE MYELOID LEUKAEMIA
     Route: 065
  2. BLOOD TRANSFUSION [Concomitant]
     Route: 051

REACTIONS (2)
  - DISEASE PROGRESSION [None]
  - PNEUMONIA [None]
